FAERS Safety Report 7771716-4 (Version None)
Quarter: 2011Q3

REPORT INFORMATION
  Report Type: 
  Country: None (occurrence: None)
  Receive Date: 20110922
  Receipt Date: 20110214
  Transmission Date: 20111222
  Serious: No
  Sender: FDA-Public Use
  Company Number: US-ASTRAZENECA-2010SE51371

PATIENT
  Age: 584 Month
  Sex: Female
  Weight: 99.8 kg

DRUGS (6)
  1. SEROQUEL [Suspect]
     Indication: MAJOR DEPRESSION
     Route: 048
     Dates: end: 20110210
  2. SEROQUEL [Suspect]
     Route: 048
  3. METHADONE HCL [Concomitant]
     Dosage: DAILY
     Route: 048
  4. HYDROCHLOROTHIAZIDE [Concomitant]
     Indication: HYPERTENSION
     Route: 048
  5. PRIAMTERENE [Concomitant]
     Indication: HYPERTENSION
     Route: 048
  6. ASPIRIN [Concomitant]
     Dosage: DAILY
     Route: 048

REACTIONS (6)
  - ARTHRALGIA [None]
  - ARTHRITIS [None]
  - ANXIETY [None]
  - DRUG DOSE OMISSION [None]
  - WRONG DRUG ADMINISTERED [None]
  - WRONG TECHNIQUE IN DRUG USAGE PROCESS [None]
